FAERS Safety Report 24761491 (Version 2)
Quarter: 2024Q4

REPORT INFORMATION
  Report Type: Report from Study
  Country: US (occurrence: US)
  Receive Date: 20241220
  Receipt Date: 20241230
  Transmission Date: 20250115
  Serious: Yes (Hospitalization, Other)
  Sender: GILEAD
  Company Number: US-GILEAD-2024-0697696

PATIENT
  Sex: Female

DRUGS (1)
  1. AZTREONAM LYSINE [Suspect]
     Active Substance: AZTREONAM LYSINE
     Indication: Cystic fibrosis
     Dosage: 75 MG, TID ((75 MG TAKEN 28 DAYS ON AND 28 DAYS OFF. QUANTITY OF 84))
     Route: 055

REACTIONS (3)
  - General physical health deterioration [Not Recovered/Not Resolved]
  - Cystic fibrosis [Unknown]
  - Product use issue [Unknown]
